FAERS Safety Report 4581098-7 (Version None)
Quarter: 2005Q1

REPORT INFORMATION
  Report Type: 
  Country: None (occurrence: None)
  Receive Date: 20050214
  Receipt Date: 20040805
  Transmission Date: 20050727
  Serious: No
  Sender: FDA-Public Use
  Company Number: US-GLAXOSMITHKLINE-A0521102A

PATIENT
  Age: 22 Year
  Sex: Male

DRUGS (4)
  1. LAMICTAL [Suspect]
     Indication: EPILEPSY
     Dosage: 550MG TWICE PER DAY
     Route: 048
  2. TEGRETOL [Concomitant]
  3. DILANTIN [Concomitant]
  4. PRIMIDONE [Concomitant]

REACTIONS (1)
  - RASH [None]
